FAERS Safety Report 20992363 (Version 1)
Quarter: 2022Q2

REPORT INFORMATION
  Report Type: Spontaneous
  Country: US (occurrence: None)
  Receive Date: 20220621
  Receipt Date: 20220621
  Transmission Date: 20220721
  Serious: No
  Sender: FDA-Public Use
  Company Number: None

PATIENT
  Age: 30 Year
  Sex: Male
  Weight: 75.6 kg

DRUGS (3)
  1. PAXLOVID [Suspect]
     Active Substance: NIRMATRELVIR\RITONAVIR
     Indication: COVID-19
     Dates: start: 20220603, end: 20220607
  2. TESSALON [Concomitant]
     Active Substance: BENZONATATE
     Dates: start: 20220531, end: 20220603
  3. ALBUTEROL [Concomitant]
     Active Substance: ALBUTEROL
     Dates: start: 20220614

REACTIONS (7)
  - Fatigue [None]
  - Dizziness [None]
  - Abdominal pain upper [None]
  - Abdominal pain [None]
  - Diarrhoea [None]
  - Decreased appetite [None]
  - SARS-CoV-2 test negative [None]

NARRATIVE: CASE EVENT DATE: 20220609
